FAERS Safety Report 7653837-X (Version None)
Quarter: 2011Q3

REPORT INFORMATION
  Report Type: 
  Country: None (occurrence: None)
  Receive Date: 20110803
  Receipt Date: 20110729
  Transmission Date: 20111222
  Serious: No
  Sender: FDA-Public Use
  Company Number: JP-B.I. PHARMACEUTICALS,INC./RIDGEFIELD-2011-BP-16180NB

PATIENT
  Sex: Male
  Weight: 65.8 kg

DRUGS (5)
  1. PRADAXA [Suspect]
     Dosage: 220 MG
     Route: 048
     Dates: start: 20110614, end: 20110615
  2. UNKNOWN DRUG/ARB [Concomitant]
     Route: 048
  3. CARVEDILOL [Suspect]
     Dosage: 5 MG
     Route: 065
     Dates: start: 20110123
  4. URINORM [Suspect]
     Dosage: 50 MG
     Route: 065
     Dates: start: 20110123
  5. LIVALO [Concomitant]
     Indication: HYPERLIPIDAEMIA
     Dosage: 1 MG
     Route: 048
     Dates: start: 20110123

REACTIONS (1)
  - INTERNATIONAL NORMALISED RATIO INCREASED [None]
